FAERS Safety Report 9385357 (Version 4)
Quarter: 2014Q2

REPORT INFORMATION
  Report Type: Spontaneous
  Country: US (occurrence: US)
  Receive Date: 20130705
  Receipt Date: 20140527
  Transmission Date: 20141212
  Serious: Yes (Death, Hospitalization)
  Sender: FDA-Public Use
  Company Number: US-GLAXOSMITHKLINE-A1029936A

PATIENT
  Sex: Male

DRUGS (1)
  1. AVANDIA [Suspect]
     Indication: DIABETES MELLITUS
     Dosage: 8MG PER DAY
     Route: 048
     Dates: start: 200009, end: 200807

REACTIONS (9)
  - Cardiac failure congestive [Fatal]
  - Ischaemic cardiomyopathy [Fatal]
  - Atrial fibrillation [Unknown]
  - Aortic stenosis [Fatal]
  - Cerebrovascular accident [Unknown]
  - Coronary artery bypass [Unknown]
  - Pulmonary oedema [Unknown]
  - Coronary artery disease [Fatal]
  - Pleural effusion [Unknown]
